FAERS Safety Report 5192496-5 (Version None)
Quarter: 2006Q4

REPORT INFORMATION
  Report Type: 
  Country: None (occurrence: None)
  Receive Date: 20061220
  Receipt Date: 20061212
  Transmission Date: 20070319
  Serious: Yes (Life-Threatening)
  Sender: FDA-Public Use
  Company Number: 2006152335

PATIENT
  Age: 83 Year
  Sex: Male

DRUGS (5)
  1. ATORVASTATIN CALCIUM [Suspect]
     Indication: HYPERCHOLESTEROLAEMIA
     Dosage: 10 MG (10 MG, 1 IN 1 D), ORAL
     Route: 048
     Dates: start: 20060101, end: 20060523
  2. EBASTREL (EBASTINE) [Suspect]
     Indication: DERMATITIS
     Dosage: 20 MG (10 MG, EVERY DAY), ORAL
     Route: 048
     Dates: start: 20060410, end: 20060523
  3. SINTROM [Concomitant]
  4. DIGOXIN [Concomitant]
  5. KALPRESS (VALSARTAN) [Concomitant]

REACTIONS (3)
  - HEPATIC FAILURE [None]
  - HEPATITIS CHOLESTATIC [None]
  - PROTHROMBIN LEVEL DECREASED [None]
